FAERS Safety Report 17197402 (Version 2)
Quarter: 2020Q1

REPORT INFORMATION
  Report Type: Spontaneous
  Country: US (occurrence: US)
  Receive Date: 20191224
  Receipt Date: 20200104
  Transmission Date: 20200409
  Serious: No
  Sender: FDA-Public Use
  Company Number: US-009507513-1912USA005246

PATIENT
  Age: 90 Year
  Sex: Female

DRUGS (1)
  1. ASMANEX [Suspect]
     Active Substance: MOMETASONE FUROATE
     Dosage: 1 PUFF EVERY NIGHT

REACTIONS (3)
  - Product quality issue [Unknown]
  - Poor quality device used [Unknown]
  - No adverse event [Unknown]
